FAERS Safety Report 15588448 (Version 1)
Quarter: 2018Q4

REPORT INFORMATION
  Report Type: Spontaneous
  Country: TW (occurrence: TW)
  Receive Date: 20181105
  Receipt Date: 20181105
  Transmission Date: 20190205
  Serious: Yes (Death, Other)
  Sender: FDA-Public Use
  Company Number: TW-ALEMBIC PHARMACUETICALS LIMITED-2018SCAL000818

PATIENT
  Age: 65 Year
  Sex: Female

DRUGS (1)
  1. METRONIDAZOLE. [Suspect]
     Active Substance: METRONIDAZOLE
     Indication: CHOLANGITIS
     Dosage: 33 GRAM

REACTIONS (1)
  - Toxic encephalopathy [Fatal]
